FAERS Safety Report 7968811-3 (Version None)
Quarter: 2011Q4

REPORT INFORMATION
  Report Type: 
  Country: None (occurrence: None)
  Receive Date: 20111208
  Receipt Date: 20111201
  Transmission Date: 20120403
  Serious: Yes (Other)
  Sender: FDA-Public Use
  Company Number: AUR-APL-2011-06048

PATIENT
  Age: 72 Year
  Sex: Female
  Weight: 65 kg

DRUGS (7)
  1. ASPIRIN [Concomitant]
  2. RAMIPRIL/HCT(SALUTEC) [Concomitant]
  3. RAMIPRIL [Concomitant]
  4. BRILIQUE (PLATELET AGGREGATION INHIBITORS EXCL.HEPARIN) [Suspect]
     Indication: CORONARY ARTERY DISEASE
     Dosage: 180 MG (90 MG, 2 IN 1 D), ORAL
     Route: 048
     Dates: start: 20110929, end: 20111020
  5. SIMVASTATIN [Suspect]
     Indication: PRODUCT USED FOR UNKNOWN INDICATION
     Dosage: 40 MG (40 MG, 1 IN 1 D), ORAL
     Route: 048
     Dates: start: 20110929, end: 20111014
  6. RAMIPRIL/HCT (SALUTEC) [Concomitant]
  7. METOPROLOL TARTRATE [Concomitant]

REACTIONS (5)
  - HEPATIC FUNCTION ABNORMAL [None]
  - DRUG INTERACTION [None]
  - GAMMA-GLUTAMYLTRANSFERASE INCREASED [None]
  - ALANINE AMINOTRANSFERASE INCREASED [None]
  - ASPARTATE AMINOTRANSFERASE INCREASED [None]
